FAERS Safety Report 7959175-X (Version None)
Quarter: 2011Q4

REPORT INFORMATION
  Report Type: 
  Country: None (occurrence: None)
  Receive Date: 20111130
  Receipt Date: 20111122
  Transmission Date: 20120403
  Serious: Yes (Death, Other)
  Sender: FDA-Public Use
  Company Number: ACO_27538_2011

PATIENT
  Age: 71 Year
  Sex: Male

DRUGS (5)
  1. DETROL [Concomitant]
  2. AMPYRA [Suspect]
     Indication: GAIT DISTURBANCE
     Dosage: 10 MG, Q 12 HRS, ORAL
     Route: 048
     Dates: start: 20110117
  3. PROVIGIL [Concomitant]
  4. BACLOFEN [Concomitant]
  5. REBIF [Concomitant]

REACTIONS (2)
  - MYOCARDIAL INFARCTION [None]
  - CARDIAC FUNCTION DISTURBANCE POSTOPERATIVE [None]
